FAERS Safety Report 21978945 (Version 1)
Quarter: 2023Q1

REPORT INFORMATION
  Report Type: Spontaneous
  Country: US (occurrence: US)
  Receive Date: 20230210
  Receipt Date: 20230210
  Transmission Date: 20230418
  Serious: No
  Sender: FDA-Public Use
  Company Number: US-PERRIGO-22US015137

PATIENT
  Age: 87 Year
  Sex: Male

DRUGS (1)
  1. LOPERAMIDE HYDROCHLORIDE [Suspect]
     Active Substance: LOPERAMIDE HYDROCHLORIDE
     Indication: Diarrhoea
     Dosage: 4MG AFTER THE FIRST LOOSE STOOL; 2MG ONCE AFTER SUBSEQUENT LOOSE STOOL
     Route: 048
     Dates: start: 202209

REACTIONS (3)
  - Abdominal distension [Unknown]
  - Therapeutic product effect variable [Unknown]
  - Incorrect product administration duration [Unknown]

NARRATIVE: CASE EVENT DATE: 20220901
